FAERS Safety Report 24341355 (Version 3)
Quarter: 2024Q4

REPORT INFORMATION
  Report Type: Spontaneous
  Country: JP (occurrence: JP)
  Receive Date: 20240920
  Receipt Date: 20241205
  Transmission Date: 20250114
  Serious: Yes (Other)
  Sender: GENMAB
  Company Number: JP-GENMAB-2024-03323

PATIENT
  Age: 78 Year
  Sex: Male

DRUGS (6)
  1. EPKINLY [Suspect]
     Active Substance: EPCORITAMAB-BYSP
     Indication: Diffuse large B-cell lymphoma refractory
     Dosage: 0.16 MILLIGRAM, SINGLE
     Route: 058
     Dates: start: 20240627, end: 20240627
  2. EPKINLY [Suspect]
     Active Substance: EPCORITAMAB-BYSP
     Dosage: 0.8 MILLIGRAM, SINGLE
     Route: 058
     Dates: start: 20240704, end: 20240704
  3. EPKINLY [Suspect]
     Active Substance: EPCORITAMAB-BYSP
     Dosage: 48 MILLIGRAM, WEEKLY
     Route: 058
     Dates: start: 20240711
  4. PREDNISOLONE [Concomitant]
     Active Substance: PREDNISOLONE
     Indication: Prophylaxis
     Dosage: 100 MILLIGRAM, ON DAY 1 (30 MINUTES BEFORE EPKINLY ADMINISTRATION), DAY 2, DAY 3 AND DAY 4, FROM THE
     Dates: start: 20240627, end: 202407
  5. FEXOFENADINE HYDROCHLORIDE [Concomitant]
     Active Substance: FEXOFENADINE HYDROCHLORIDE
     Indication: Prophylaxis
     Dosage: 60 MILLIGRAM, ON DAY 1, FROM THE FIRST TO THE FOURTH DOSE IN CYCLE 1 OF EPKINLY ADMINISTRATION, 30 M
     Route: 048
     Dates: start: 20240627, end: 202407
  6. CALONAL [Concomitant]
     Active Substance: ACETAMINOPHEN
     Indication: Prophylaxis
     Dosage: 800 MILLIGRAM, ON DAY 1, FROM THE FIRST TO THE FOURTH DOSE IN CYCLE 1 OF EPKINLY ADMINISTRATION, 30
     Route: 048
     Dates: start: 20240627, end: 202407

REACTIONS (2)
  - Delirium [Recovered/Resolved]
  - Cytokine release syndrome [Recovered/Resolved]

NARRATIVE: CASE EVENT DATE: 20240712
